FAERS Safety Report 20711724 (Version 1)
Quarter: 2022Q2

REPORT INFORMATION
  Report Type: Spontaneous
  Country: JP (occurrence: None)
  Receive Date: 20220414
  Receipt Date: 20220414
  Transmission Date: 20220720
  Serious: Yes (Other)
  Sender: FDA-Public Use
  Company Number: 2022A143687

PATIENT
  Age: 40 Year

DRUGS (2)
  1. IMFINZI [Suspect]
     Active Substance: DURVALUMAB
     Indication: Non-small cell lung cancer
     Route: 041
     Dates: start: 20210415, end: 20211105
  2. GARGLES [Concomitant]
     Dosage: DOSE UNKNOWN
     Route: 048
     Dates: start: 20210222

REACTIONS (3)
  - Metastases to lymph nodes [Unknown]
  - Metastases to central nervous system [Unknown]
  - Tumour marker increased [Unknown]

NARRATIVE: CASE EVENT DATE: 20211119
